FAERS Safety Report 5803663-9 (Version None)
Quarter: 2008Q3

REPORT INFORMATION
  Report Type: 
  Country: None (occurrence: None)
  Receive Date: 20080708
  Receipt Date: 20070619
  Transmission Date: 20090109
  Serious: No
  Sender: FDA-Public Use
  Company Number: US-AMGEN-KDL230274

PATIENT
  Sex: Female

DRUGS (3)
  1. KINERET [Suspect]
     Indication: RHEUMATOID ARTHRITIS
     Route: 058
     Dates: start: 19970101
  2. KINERET [Suspect]
     Indication: JUVENILE ARTHRITIS
  3. HUMIRA [Concomitant]
     Dates: start: 20020101

REACTIONS (6)
  - ASTHENIA [None]
  - DYSPNOEA [None]
  - FLUSHING [None]
  - PYREXIA [None]
  - RED BLOOD CELL SEDIMENTATION RATE INCREASED [None]
  - RHEUMATOID ARTHRITIS [None]
